FAERS Safety Report 5157724-0 (Version None)
Quarter: 2006Q4

REPORT INFORMATION
  Report Type: 
  Country: None (occurrence: None)
  Receive Date: 20061116
  Receipt Date: 20061103
  Transmission Date: 20070319
  Serious: Yes (Other)
  Sender: FDA-Public Use
  Company Number: GXKR2006US07160

PATIENT
  Age: 69 Year
  Sex: Female

DRUGS (1)
  1. VERAPAMIL [Suspect]
     Indication: DRUG USE FOR UNKNOWN INDICATION
     Dosage: 640 MG, ORAL
     Route: 048

REACTIONS (3)
  - ATRIOVENTRICULAR BLOCK [None]
  - HYPOTENSION [None]
  - MEDICATION ERROR [None]
